FAERS Safety Report 9696232 (Version 1)
Quarter: 2013Q4

REPORT INFORMATION
  Report Type: Spontaneous
  Country: US (occurrence: US)
  Receive Date: 20131119
  Receipt Date: 20131119
  Transmission Date: 20140711
  Serious: Yes (Hospitalization, Other)
  Sender: FDA-Public Use
  Company Number: US-ABBVIE-13P-163-1170715-00

PATIENT
  Age: 72 Year
  Sex: Male
  Weight: 105.33 kg

DRUGS (4)
  1. ANDROGEL [Suspect]
     Indication: BLOOD TESTOSTERONE DECREASED
     Route: 061
     Dates: end: 20131106
  2. LISINOPRIL [Concomitant]
     Indication: BLOOD PRESSURE
  3. SYNTHROID [Concomitant]
     Indication: HYPOTHYROIDISM
  4. SIMVASTATIN [Concomitant]
     Indication: BLOOD CHOLESTEROL INCREASED

REACTIONS (5)
  - Myocardial infarction [Recovered/Resolved]
  - Chest pain [Recovered/Resolved]
  - Osteoarthritis [Recovered/Resolved]
  - Musculoskeletal pain [Recovering/Resolving]
  - Coronary artery occlusion [Unknown]
